FAERS Safety Report 7472239-2 (Version None)
Quarter: 2011Q1

REPORT INFORMATION
  Report Type: 
  Country: None (occurrence: None)
  Receive Date: 20110302
  Receipt Date: 20101105
  Transmission Date: 20110831
  Serious: Yes (Other)
  Sender: FDA-Public Use
  Company Number: 163-21880-10110183

PATIENT
  Age: 84 Year
  Sex: Female

DRUGS (4)
  1. REVLIMID [Suspect]
     Indication: MULTIPLE MYELOMA
     Dosage: 5 MG, 1 IN 1 D, PO, 10 MG, 2 IN 1 D, PO,  5 MG, 1 IN 1 D, PO, 5 MG, 1 IN 1  D, PO
     Route: 048
     Dates: start: 20080131
  2. REVLIMID [Suspect]
     Indication: MULTIPLE MYELOMA
     Dosage: 5 MG, 1 IN 1 D, PO, 10 MG, 2 IN 1 D, PO,  5 MG, 1 IN 1 D, PO, 5 MG, 1 IN 1  D, PO
     Route: 048
     Dates: start: 20090101
  3. REVLIMID [Suspect]
     Indication: MULTIPLE MYELOMA
     Dosage: 5 MG, 1 IN 1 D, PO, 10 MG, 2 IN 1 D, PO,  5 MG, 1 IN 1 D, PO, 5 MG, 1 IN 1  D, PO
     Route: 048
     Dates: start: 20090901
  4. REVLIMID [Suspect]
     Indication: MULTIPLE MYELOMA
     Dosage: 5 MG, 1 IN 1 D, PO, 10 MG, 2 IN 1 D, PO,  5 MG, 1 IN 1 D, PO, 5 MG, 1 IN 1  D, PO
     Route: 048
     Dates: start: 20090301

REACTIONS (2)
  - INTESTINAL FUNCTIONAL DISORDER [None]
  - ANAEMIA [None]
